FAERS Safety Report 5032009-1 (Version None)
Quarter: 2006Q2

REPORT INFORMATION
  Report Type: 
  Country: None (occurrence: None)
  Receive Date: 20060619
  Receipt Date: 20060609
  Transmission Date: 20061013
  Serious: Yes (Other)
  Sender: FDA-Public Use
  Company Number: HQWYE059709JUN06

PATIENT
  Age: 71 Year
  Sex: Male

DRUGS (6)
  1. ANCARON (AMIODARONE, TABLET) [Suspect]
     Indication: VENTRICULAR TACHYCARDIA
     Dosage: ORAL
     Route: 048
  2. NEOSTIGMINE (NEOSTIGMINE, ) [Suspect]
     Indication: NEUROMUSCULAR BLOCKADE REVERSAL
     Dosage: 2.5 MG X 1, INTRAVENOUS
     Route: 042
  3. PROPOFOL [Suspect]
     Indication: ANAESTHESIA
     Dosage: SEE IMAGE
     Route: 042
  4. FENTANYL [Concomitant]
  5. VECURONIUM (VECURONIUM) [Concomitant]
  6. ATROPINE [Concomitant]

REACTIONS (3)
  - DRUG INTERACTION [None]
  - NODAL RHYTHM [None]
  - SINUS ARREST [None]
